FAERS Safety Report 5559812-3 (Version None)
Quarter: 2007Q4

REPORT INFORMATION
  Report Type: 
  Country: None (occurrence: None)
  Receive Date: 20071214
  Receipt Date: 20071016
  Transmission Date: 20080405
  Serious: No
  Sender: FDA-Public Use
  Company Number: US-ABBOTT-07P-163-0421243-00

PATIENT
  Sex: Male
  Weight: 72.64 kg

DRUGS (4)
  1. HUMIRA [Suspect]
     Indication: RHEUMATOID ARTHRITIS
     Route: 058
     Dates: start: 20040101, end: 20070901
  2. HUMIRA [Suspect]
     Route: 058
     Dates: start: 20071015
  3. METHOTREXATE [Suspect]
     Indication: RHEUMATOID ARTHRITIS
     Route: 058
     Dates: end: 20070901
  4. METHOTREXATE [Suspect]
     Dates: start: 20071015

REACTIONS (2)
  - INFLUENZA LIKE ILLNESS [None]
  - VOMITING [None]
